FAERS Safety Report 8361914-3 (Version None)
Quarter: 2012Q2

REPORT INFORMATION
  Report Type: 
  Country: None (occurrence: None)
  Receive Date: 20120515
  Receipt Date: 20120502
  Transmission Date: 20120825
  Serious: Yes (Life-Threatening)
  Sender: FDA-Public Use
  Company Number: GB-TEVA-336045ISR

PATIENT
  Age: 26 Year
  Sex: Female
  Weight: 70 kg

DRUGS (1)
  1. TRIMETHOPRIM [Suspect]
     Indication: URINARY TRACT INFECTION
     Route: 048
     Dates: start: 20120418, end: 20120418

REACTIONS (8)
  - DYSPNOEA [None]
  - THROAT TIGHTNESS [None]
  - ABDOMINAL PAIN [None]
  - HYPOTENSION [None]
  - VOMITING [None]
  - WHEEZING [None]
  - SWOLLEN TONGUE [None]
  - URTICARIA [None]
